FAERS Safety Report 6971841-1 (Version None)
Quarter: 2010Q3

REPORT INFORMATION
  Report Type: 
  Country: None (occurrence: None)
  Receive Date: 20100903
  Receipt Date: 20100820
  Transmission Date: 20110219
  Serious: Yes (Other)
  Sender: FDA-Public Use
  Company Number: 2010002539

PATIENT
  Age: 74 Year
  Sex: Female
  Weight: 48.8 kg

DRUGS (6)
  1. ERLOTINIB (ERLOTINIB) (TABLET) (ERLOTINIB) [Suspect]
     Indication: LUNG ADENOCARCINOMA
     Dosage: 150 MG, QD, ORAL
     Route: 048
     Dates: start: 20090617, end: 20100212
  2. CIMETIDINE [Concomitant]
  3. NORVASC [Concomitant]
  4. ETODOLAC [Concomitant]
  5. MICARDIS [Concomitant]
  6. WARFARIN SODIUM [Concomitant]

REACTIONS (8)
  - LUNG ADENOCARCINOMA [None]
  - MALIGNANT NEOPLASM PROGRESSION [None]
  - PARONYCHIA [None]
  - PSEUDOMONAS INFECTION [None]
  - RASH [None]
  - SKIN DISORDER [None]
  - SKIN NECROSIS [None]
  - SKIN ULCER [None]
